FAERS Safety Report 8245471-8 (Version None)
Quarter: 2012Q1

REPORT INFORMATION
  Report Type: 
  Country: None (occurrence: None)
  Receive Date: 20120329
  Receipt Date: 20120327
  Transmission Date: 20120608
  Serious: Yes (Death, Life-Threatening)
  Sender: FDA-Public Use
  Company Number: GR-MERCK-1203USA03464

PATIENT
  Sex: Male

DRUGS (2)
  1. AMBISOME [Suspect]
     Route: 065
     Dates: start: 20120101, end: 20120101
  2. CANCIDAS [Suspect]
     Route: 042
     Dates: start: 20120101, end: 20120101

REACTIONS (2)
  - DEATH [None]
  - DRUG INEFFECTIVE [None]
